FAERS Safety Report 17454733 (Version 1)
Quarter: 2020Q1

REPORT INFORMATION
  Report Type: Spontaneous
  Country: US (occurrence: US)
  Receive Date: 20200224
  Receipt Date: 20200224
  Transmission Date: 20200409
  Serious: No
  Sender: FDA-Public Use
  Company Number: None

PATIENT
  Age: 68 Year
  Sex: Female
  Weight: 143.1 kg

DRUGS (22)
  1. ASPIRIN 81 MG [Concomitant]
     Active Substance: ASPIRIN
  2. LIOTHYRONINE [Concomitant]
     Active Substance: LIOTHYRONINE
  3. ATENOLOL. [Concomitant]
     Active Substance: ATENOLOL
  4. DILTIAZEM. [Concomitant]
     Active Substance: DILTIAZEM
  5. FISH OIL [Concomitant]
     Active Substance: FISH OIL
  6. JANUVIA [Concomitant]
     Active Substance: SITAGLIPTIN PHOSPHATE
  7. PERCOCET [Concomitant]
     Active Substance: ACETAMINOPHEN\OXYCODONE HYDROCHLORIDE
  8. PANTOPRAZOLE [Concomitant]
     Active Substance: PANTOPRAZOLE
  9. CAPECITABINE. [Suspect]
     Active Substance: CAPECITABINE
  10. ATORVASTATIN [Concomitant]
     Active Substance: ATORVASTATIN
  11. FARXIGA [Concomitant]
     Active Substance: DAPAGLIFLOZIN PROPANEDIOL
  12. SPIRONOLACTONE. [Concomitant]
     Active Substance: SPIRONOLACTONE
  13. VICTOZA [Concomitant]
     Active Substance: LIRAGLUTIDE
  14. KLONOPIN [Concomitant]
     Active Substance: CLONAZEPAM
  15. TRAZODONE [Concomitant]
     Active Substance: TRAZODONE HYDROCHLORIDE
  16. AVAPRO [Concomitant]
     Active Substance: IRBESARTAN
  17. CHLORTHALIDONE. [Concomitant]
     Active Substance: CHLORTHALIDONE
  18. LEVOCETIRIZINE [Concomitant]
     Active Substance: LEVOCETIRIZINE
  19. NOVOLOG [Concomitant]
     Active Substance: INSULIN ASPART
  20. SEROQUEL [Concomitant]
     Active Substance: QUETIAPINE FUMARATE
  21. METFORMIN [Concomitant]
     Active Substance: METFORMIN HYDROCHLORIDE
  22. ZINC. [Concomitant]
     Active Substance: ZINC

REACTIONS (1)
  - Fatigue [None]

NARRATIVE: CASE EVENT DATE: 20200224
